FAERS Safety Report 24038675 (Version 6)
Quarter: 2025Q3

REPORT INFORMATION
  Report Type: Spontaneous
  Country: EU (occurrence: EU)
  Receive Date: 20240702
  Receipt Date: 20250725
  Transmission Date: 20251020
  Serious: Yes (Other)
  Sender: AUROBINDO
  Company Number: EU-BRISTOL-MYERS SQUIBB COMPANY-2024-048078

PATIENT
  Age: 64 Year
  Sex: Male
  Weight: 92 kg

DRUGS (137)
  1. OXALIPLATIN [Suspect]
     Active Substance: OXALIPLATIN
     Indication: Gastric cancer
     Route: 042
     Dates: start: 20231108, end: 20240510
  2. OXALIPLATIN [Suspect]
     Active Substance: OXALIPLATIN
     Route: 042
     Dates: start: 20231108, end: 20240510
  3. OPDIVO [Suspect]
     Active Substance: NIVOLUMAB
     Indication: Gastric cancer
     Route: 042
     Dates: start: 20231107
  4. OPDIVO [Suspect]
     Active Substance: NIVOLUMAB
     Route: 042
     Dates: start: 20240529
  5. FLUOROURACIL [Suspect]
     Active Substance: FLUOROURACIL
     Indication: Gastric cancer
     Route: 042
     Dates: start: 20231108, end: 20241204
  6. FLUOROURACIL [Suspect]
     Active Substance: FLUOROURACIL
     Route: 042
     Dates: start: 20241204, end: 20241206
  7. FLUOROURACIL [Suspect]
     Active Substance: FLUOROURACIL
     Route: 042
     Dates: start: 20240405
  8. FLUOROURACIL [Suspect]
     Active Substance: FLUOROURACIL
     Route: 042
     Dates: start: 20240426
  9. FLUOROURACIL [Suspect]
     Active Substance: FLUOROURACIL
     Route: 042
     Dates: start: 20240731
  10. FLUOROURACIL [Suspect]
     Active Substance: FLUOROURACIL
     Route: 042
     Dates: start: 20240307
  11. LEUCOVORIN CALCIUM [Concomitant]
     Active Substance: LEUCOVORIN CALCIUM
     Indication: Gastric cancer
     Route: 042
     Dates: start: 20231107, end: 20231107
  12. LEUCOVORIN CALCIUM [Concomitant]
     Active Substance: LEUCOVORIN CALCIUM
     Dosage: 422 MILLIGRAM, ONCE A DAY
     Route: 042
     Dates: start: 20231108, end: 20231108
  13. LEUCOVORIN CALCIUM [Concomitant]
     Active Substance: LEUCOVORIN CALCIUM
     Dosage: 422 MILLIGRAM, ONCE A DAY
     Route: 042
     Dates: start: 20231109, end: 20231109
  14. LEUCOVORIN CALCIUM [Concomitant]
     Active Substance: LEUCOVORIN CALCIUM
     Dosage: 426 MILLIGRAM, ONCE A DAY
     Route: 042
     Dates: start: 20231122, end: 20231122
  15. LEUCOVORIN CALCIUM [Concomitant]
     Active Substance: LEUCOVORIN CALCIUM
     Dosage: 426 MILLIGRAM, ONCE A DAY
     Route: 042
     Dates: start: 20231123, end: 20231123
  16. LEUCOVORIN CALCIUM [Concomitant]
     Active Substance: LEUCOVORIN CALCIUM
     Dosage: 414 MILLIGRAM, ONCE A DAY
     Route: 042
     Dates: start: 20231220, end: 20231220
  17. LEUCOVORIN CALCIUM [Concomitant]
     Active Substance: LEUCOVORIN CALCIUM
     Dosage: 414 MILLIGRAM, ONCE A DAY
     Route: 042
     Dates: start: 20231221, end: 20231221
  18. LEUCOVORIN CALCIUM [Concomitant]
     Active Substance: LEUCOVORIN CALCIUM
     Dosage: 426 MILLIGRAM, ONCE A DAY
     Route: 042
     Dates: start: 20240103, end: 20240103
  19. LEUCOVORIN CALCIUM [Concomitant]
     Active Substance: LEUCOVORIN CALCIUM
     Dosage: 426 MILLIGRAM, ONCE A DAY
     Route: 042
     Dates: start: 20240104, end: 20240104
  20. LEUCOVORIN CALCIUM [Concomitant]
     Active Substance: LEUCOVORIN CALCIUM
     Dosage: 418 MILLIGRAM, ONCE A DAY
     Route: 042
     Dates: start: 20240117, end: 20240117
  21. LEUCOVORIN CALCIUM [Concomitant]
     Active Substance: LEUCOVORIN CALCIUM
     Dosage: 418 MILLIGRAM, ONCE A DAY
     Route: 042
     Dates: start: 20240118, end: 20240118
  22. LEUCOVORIN CALCIUM [Concomitant]
     Active Substance: LEUCOVORIN CALCIUM
     Dosage: 418 MILLIGRAM, ONCE A DAY
     Route: 042
     Dates: start: 20240207, end: 20240207
  23. LEUCOVORIN CALCIUM [Concomitant]
     Active Substance: LEUCOVORIN CALCIUM
     Dosage: 418 MILLIGRAM, ONCE A DAY
     Route: 042
     Dates: start: 20240208, end: 20240208
  24. LEUCOVORIN CALCIUM [Concomitant]
     Active Substance: LEUCOVORIN CALCIUM
     Dosage: 418 MILLIGRAM, ONCE A DAY
     Route: 042
     Dates: start: 20240221, end: 20240221
  25. LEUCOVORIN CALCIUM [Concomitant]
     Active Substance: LEUCOVORIN CALCIUM
     Dosage: 418 MILLIGRAM, ONCE A DAY
     Route: 042
     Dates: start: 20240222, end: 20240222
  26. LEUCOVORIN CALCIUM [Concomitant]
     Active Substance: LEUCOVORIN CALCIUM
     Dosage: 418 MILLIGRAM, ONCE A DAY
     Route: 042
     Dates: start: 20240306, end: 20240306
  27. LEUCOVORIN CALCIUM [Concomitant]
     Active Substance: LEUCOVORIN CALCIUM
     Dosage: 418 MILLIGRAM, ONCE A DAY
     Route: 042
     Dates: start: 20240307, end: 20240307
  28. LEUCOVORIN CALCIUM [Concomitant]
     Active Substance: LEUCOVORIN CALCIUM
     Dosage: 418 MILLIGRAM, ONCE A DAY
     Route: 042
     Dates: start: 20240320, end: 20240320
  29. LEUCOVORIN CALCIUM [Concomitant]
     Active Substance: LEUCOVORIN CALCIUM
     Dosage: 418 MILLIGRAM, ONCE A DAY
     Route: 042
     Dates: start: 20240419, end: 20240420
  30. LEUCOVORIN CALCIUM [Concomitant]
     Active Substance: LEUCOVORIN CALCIUM
     Dosage: 418 MILLIGRAM, ONCE A DAY
     Route: 042
     Dates: start: 20240510, end: 20240510
  31. LEUCOVORIN CALCIUM [Concomitant]
     Active Substance: LEUCOVORIN CALCIUM
     Dosage: 418 MILLIGRAM, ONCE A DAY
     Route: 042
     Dates: start: 20240527, end: 20240527
  32. LEUCOVORIN CALCIUM [Concomitant]
     Active Substance: LEUCOVORIN CALCIUM
     Dosage: 418 MILLIGRAM, ONCE A DAY
     Route: 042
     Dates: start: 20240610, end: 20240610
  33. LEUCOVORIN CALCIUM [Concomitant]
     Active Substance: LEUCOVORIN CALCIUM
     Dosage: 426 MILLIGRAM, ONCE A DAY
     Route: 042
     Dates: start: 20231206, end: 20231206
  34. LEUCOVORIN CALCIUM [Concomitant]
     Active Substance: LEUCOVORIN CALCIUM
     Dosage: 426 MILLIGRAM, ONCE A DAY
     Route: 042
     Dates: start: 20231208, end: 20231208
  35. LEUCOVORIN CALCIUM [Concomitant]
     Active Substance: LEUCOVORIN CALCIUM
     Dosage: 418 MILLIGRAM, ONCE A DAY
     Route: 042
     Dates: start: 20240405, end: 20240405
  36. LEUCOVORIN CALCIUM [Concomitant]
     Active Substance: LEUCOVORIN CALCIUM
     Dosage: 418 MILLIGRAM, ONCE A DAY
     Route: 042
     Dates: start: 20240406, end: 20240406
  37. LEUCOVORIN CALCIUM [Concomitant]
     Active Substance: LEUCOVORIN CALCIUM
     Dosage: 418 MILLIGRAM, ONCE A DAY
     Route: 042
     Dates: start: 20240626, end: 20240626
  38. LEUCOVORIN CALCIUM [Concomitant]
     Active Substance: LEUCOVORIN CALCIUM
     Dosage: 334 MILLIGRAM, ONCE A DAY
     Route: 042
     Dates: start: 20240710, end: 20240710
  39. LEUCOVORIN CALCIUM [Concomitant]
     Active Substance: LEUCOVORIN CALCIUM
     Dosage: 285 MILLIGRAM, ONCE A DAY
     Route: 042
     Dates: start: 20240731, end: 20240731
  40. LEUCOVORIN CALCIUM [Concomitant]
     Active Substance: LEUCOVORIN CALCIUM
     Dosage: 285 MILLIGRAM, ONCE A DAY
     Route: 042
     Dates: start: 20240821, end: 20240821
  41. LEUCOVORIN CALCIUM [Concomitant]
     Active Substance: LEUCOVORIN CALCIUM
     Dosage: 285 MILLIGRAM, ONCE A DAY
     Route: 042
     Dates: start: 20240904, end: 20240904
  42. LEUCOVORIN CALCIUM [Concomitant]
     Active Substance: LEUCOVORIN CALCIUM
     Dosage: 285 MILLIGRAM, ONCE A DAY
     Route: 042
     Dates: start: 20240918, end: 20240918
  43. LEUCOVORIN CALCIUM [Concomitant]
     Active Substance: LEUCOVORIN CALCIUM
     Dosage: 285 MILLIGRAM, ONCE A DAY
     Route: 042
     Dates: start: 20241016, end: 20241016
  44. LEUCOVORIN CALCIUM [Concomitant]
     Active Substance: LEUCOVORIN CALCIUM
     Dosage: 285 MILLIGRAM, ONCE A DAY
     Route: 042
     Dates: start: 20241106, end: 20241106
  45. LEUCOVORIN CALCIUM [Concomitant]
     Active Substance: LEUCOVORIN CALCIUM
     Dosage: 285 MILLIGRAM, ONCE A DAY
     Route: 042
     Dates: start: 20241120, end: 20241120
  46. LEUCOVORIN CALCIUM [Concomitant]
     Active Substance: LEUCOVORIN CALCIUM
     Dosage: 285 MILLIGRAM, ONCE A DAY
     Route: 042
     Dates: start: 20241204, end: 20241204
  47. LEUCOVORIN CALCIUM [Concomitant]
     Active Substance: LEUCOVORIN CALCIUM
     Dosage: 285 MILLIGRAM, ONCE A DAY
     Route: 042
     Dates: start: 20241002, end: 20241002
  48. DEXAMETHASONE [Concomitant]
     Active Substance: DEXAMETHASONE
     Indication: Prophylaxis
     Dosage: 8 MILLIGRAM, ONCE A DAY
     Route: 042
     Dates: start: 20231221, end: 20231221
  49. DEXAMETHASONE [Concomitant]
     Active Substance: DEXAMETHASONE
     Dosage: 8 MILLIGRAM, ONCE A DAY
     Route: 042
     Dates: start: 20231208, end: 20231209
  50. DEXAMETHASONE [Concomitant]
     Active Substance: DEXAMETHASONE
     Dosage: 8 MILLIGRAM, ONCE A DAY
     Route: 042
     Dates: start: 20231125, end: 20231125
  51. DEXAMETHASONE [Concomitant]
     Active Substance: DEXAMETHASONE
     Dosage: 8 MILLIGRAM, ONCE A DAY
     Route: 042
     Dates: start: 20231123, end: 20231123
  52. DEXAMETHASONE [Concomitant]
     Active Substance: DEXAMETHASONE
     Dosage: 8 MILLIGRAM, ONCE A DAY
     Route: 042
     Dates: start: 20231109, end: 20231110
  53. DEXAMETHASONE [Concomitant]
     Active Substance: DEXAMETHASONE
     Dosage: 8 MILLIGRAM, ONCE A DAY
     Route: 042
     Dates: start: 20231206, end: 20231206
  54. DEXAMETHASONE [Concomitant]
     Active Substance: DEXAMETHASONE
     Dosage: 8 MILLIGRAM, ONCE A DAY
     Route: 042
     Dates: start: 20231108, end: 20231108
  55. DEXAMETHASONE [Concomitant]
     Active Substance: DEXAMETHASONE
     Dosage: 8 MILLIGRAM, ONCE A DAY
     Route: 042
     Dates: start: 20231122, end: 20231122
  56. DEXAMETHASONE [Concomitant]
     Active Substance: DEXAMETHASONE
     Dosage: 8 MILLIGRAM, ONCE A DAY
     Route: 042
     Dates: start: 20231220, end: 20231220
  57. DEXAMETHASONE [Concomitant]
     Active Substance: DEXAMETHASONE
     Dosage: 8 MILLIGRAM, ONCE A DAY
     Route: 042
     Dates: start: 20240103, end: 20240103
  58. DEXAMETHASONE [Concomitant]
     Active Substance: DEXAMETHASONE
     Dosage: 8 MILLIGRAM, ONCE A DAY
     Route: 042
     Dates: start: 20240117, end: 20240117
  59. DEXAMETHASONE [Concomitant]
     Active Substance: DEXAMETHASONE
     Dosage: 8 MILLIGRAM, ONCE A DAY
     Route: 042
     Dates: start: 20240207, end: 20240207
  60. DEXAMETHASONE [Concomitant]
     Active Substance: DEXAMETHASONE
     Dosage: 8 MILLIGRAM, ONCE A DAY
     Route: 042
     Dates: start: 20240222, end: 20240223
  61. DEXAMETHASONE [Concomitant]
     Active Substance: DEXAMETHASONE
     Dosage: 8 MILLIGRAM, ONCE A DAY
     Route: 042
     Dates: start: 20240306, end: 20240306
  62. DEXAMETHASONE [Concomitant]
     Active Substance: DEXAMETHASONE
     Dosage: 8 MILLIGRAM, ONCE A DAY
     Route: 042
     Dates: start: 20240307, end: 20240308
  63. DEXAMETHASONE [Concomitant]
     Active Substance: DEXAMETHASONE
     Dosage: 8 MILLIGRAM, ONCE A DAY
     Route: 042
     Dates: start: 20240321, end: 20240322
  64. DEXAMETHASONE [Concomitant]
     Active Substance: DEXAMETHASONE
     Dosage: 8 MILLIGRAM, ONCE A DAY
     Route: 042
     Dates: start: 20240405, end: 20240405
  65. DEXAMETHASONE [Concomitant]
     Active Substance: DEXAMETHASONE
     Dosage: 8 MILLIGRAM, ONCE A DAY
     Route: 042
     Dates: start: 20240406, end: 20240407
  66. DEXAMETHASONE [Concomitant]
     Active Substance: DEXAMETHASONE
     Dosage: 8 MILLIGRAM, ONCE A DAY
     Route: 042
     Dates: start: 20240419, end: 20240419
  67. DEXAMETHASONE [Concomitant]
     Active Substance: DEXAMETHASONE
     Dosage: 8 MILLIGRAM, ONCE A DAY
     Route: 042
     Dates: start: 20240420, end: 20240421
  68. DEXAMETHASONE [Concomitant]
     Active Substance: DEXAMETHASONE
     Dosage: 8 MILLIGRAM, ONCE A DAY
     Route: 042
     Dates: start: 20240511, end: 20240512
  69. DEXAMETHASONE [Concomitant]
     Active Substance: DEXAMETHASONE
     Dosage: 8 MILLIGRAM, ONCE A DAY
     Route: 042
     Dates: start: 20240527, end: 20240527
  70. DEXAMETHASONE [Concomitant]
     Active Substance: DEXAMETHASONE
     Dosage: 8 MILLIGRAM, ONCE A DAY
     Route: 042
     Dates: start: 20240529, end: 20240529
  71. DEXAMETHASONE [Concomitant]
     Active Substance: DEXAMETHASONE
     Dosage: 8 MILLIGRAM, ONCE A DAY
     Route: 042
     Dates: start: 20240104, end: 20240105
  72. DEXAMETHASONE [Concomitant]
     Active Substance: DEXAMETHASONE
     Dosage: 8 MILLIGRAM, ONCE A DAY
     Route: 042
     Dates: start: 20240118, end: 20240119
  73. DEXAMETHASONE [Concomitant]
     Active Substance: DEXAMETHASONE
     Dosage: 8 MILLIGRAM, ONCE A DAY
     Route: 042
     Dates: start: 20240208, end: 20240209
  74. DEXAMETHASONE [Concomitant]
     Active Substance: DEXAMETHASONE
     Dosage: 8 MILLIGRAM, ONCE A DAY
     Route: 042
     Dates: start: 20240626, end: 20240626
  75. DEXAMETHASONE [Concomitant]
     Active Substance: DEXAMETHASONE
     Dosage: 8 MILLIGRAM, ONCE A DAY
     Route: 042
     Dates: start: 20240710, end: 20240710
  76. DEXAMETHASONE [Concomitant]
     Active Substance: DEXAMETHASONE
     Dosage: 8 MILLIGRAM, ONCE A DAY
     Route: 042
     Dates: start: 20240731, end: 20240731
  77. DEXAMETHASONE [Concomitant]
     Active Substance: DEXAMETHASONE
     Dosage: 8 MILLIGRAM, ONCE A DAY
     Route: 042
     Dates: start: 20240821, end: 20240821
  78. DEXAMETHASONE [Concomitant]
     Active Substance: DEXAMETHASONE
     Dosage: 8 MILLIGRAM, ONCE A DAY
     Route: 042
     Dates: start: 20240904, end: 20240904
  79. DEXAMETHASONE [Concomitant]
     Active Substance: DEXAMETHASONE
     Dosage: 8 MILLIGRAM, ONCE A DAY
     Route: 042
     Dates: start: 20240918, end: 20240918
  80. DEXAMETHASONE [Concomitant]
     Active Substance: DEXAMETHASONE
     Dosage: 8 MILLIGRAM, ONCE A DAY
     Route: 042
     Dates: start: 20241106, end: 20241106
  81. DEXAMETHASONE [Concomitant]
     Active Substance: DEXAMETHASONE
     Dosage: 8 MILLIGRAM, ONCE A DAY
     Route: 042
     Dates: start: 20241120, end: 20241120
  82. DEXAMETHASONE [Concomitant]
     Active Substance: DEXAMETHASONE
     Dosage: 8 MILLIGRAM, ONCE A DAY
     Route: 042
     Dates: start: 20240221, end: 20240221
  83. DEXAMETHASONE [Concomitant]
     Active Substance: DEXAMETHASONE
     Dosage: 8 MILLIGRAM, ONCE A DAY
     Route: 042
     Dates: start: 20240320, end: 20240320
  84. DEXAMETHASONE [Concomitant]
     Active Substance: DEXAMETHASONE
     Dosage: 8 MILLIGRAM, ONCE A DAY
     Route: 042
     Dates: start: 20240510, end: 20240510
  85. GRANISETRON [Concomitant]
     Active Substance: GRANISETRON
     Indication: Prophylaxis
     Dosage: 1 MILLIGRAM, ONCE A DAY
     Route: 042
     Dates: start: 20231108, end: 20231108
  86. GRANISETRON [Concomitant]
     Active Substance: GRANISETRON
     Dosage: 1 MILLIGRAM, ONCE A DAY
     Route: 042
     Dates: start: 20231122, end: 20231122
  87. GRANISETRON [Concomitant]
     Active Substance: GRANISETRON
     Dosage: 1 MILLIGRAM, ONCE A DAY
     Route: 042
     Dates: start: 20231220, end: 20231220
  88. GRANISETRON [Concomitant]
     Active Substance: GRANISETRON
     Dosage: 1 MILLIGRAM, ONCE A DAY
     Route: 042
     Dates: start: 20240103, end: 20240103
  89. GRANISETRON [Concomitant]
     Active Substance: GRANISETRON
     Dosage: 1 MILLIGRAM, ONCE A DAY
     Route: 042
     Dates: start: 20240117, end: 20240117
  90. GRANISETRON [Concomitant]
     Active Substance: GRANISETRON
     Dosage: 1 MILLIGRAM, ONCE A DAY
     Route: 042
     Dates: start: 20240221, end: 20240221
  91. GRANISETRON [Concomitant]
     Active Substance: GRANISETRON
     Dosage: 1 MILLIGRAM, ONCE A DAY
     Route: 042
     Dates: start: 20240306, end: 20240306
  92. GRANISETRON [Concomitant]
     Active Substance: GRANISETRON
     Dosage: 1 MILLIGRAM, ONCE A DAY
     Route: 042
     Dates: start: 20240320, end: 20240320
  93. GRANISETRON [Concomitant]
     Active Substance: GRANISETRON
     Dosage: 1 MILLIGRAM, ONCE A DAY
     Route: 042
     Dates: start: 20240405, end: 20240405
  94. GRANISETRON [Concomitant]
     Active Substance: GRANISETRON
     Dosage: 1 MILLIGRAM, ONCE A DAY
     Route: 042
     Dates: start: 20240419, end: 20240419
  95. GRANISETRON [Concomitant]
     Active Substance: GRANISETRON
     Dosage: 1 MILLIGRAM, ONCE A DAY
     Route: 042
     Dates: start: 20240510, end: 20240510
  96. GRANISETRON [Concomitant]
     Active Substance: GRANISETRON
     Dosage: 1 MILLIGRAM, ONCE A DAY
     Route: 042
     Dates: start: 20231206, end: 20231206
  97. GRANISETRON [Concomitant]
     Active Substance: GRANISETRON
     Dosage: 1 MILLIGRAM, ONCE A DAY
     Route: 042
     Dates: start: 20240207, end: 20240207
  98. BISOPROLOL [Concomitant]
     Active Substance: BISOPROLOL
     Indication: Product used for unknown indication
     Dosage: 5 MILLIGRAM, TWO TIMES A DAY
     Route: 048
  99. CANDESARTAN [Concomitant]
     Active Substance: CANDESARTAN
     Indication: Product used for unknown indication
     Dosage: 32 MILLIGRAM, ONCE A DAY
     Route: 048
  100. ASPIRIN [Concomitant]
     Active Substance: ASPIRIN
     Indication: Product used for unknown indication
     Dosage: 100 MILLIGRAM, ONCE A DAY
     Route: 048
  101. PANTOPRAZOLE [Concomitant]
     Active Substance: PANTOPRAZOLE
     Indication: Prophylaxis
     Dosage: 40 MILLIGRAM, ONCE A DAY
     Route: 048
     Dates: start: 20240105
  102. EVOLOCUMAB [Concomitant]
     Active Substance: EVOLOCUMAB
     Indication: Product used for unknown indication
     Route: 058
  103. PLATINUM [Concomitant]
     Active Substance: PLATINUM
     Indication: Gastric cancer
     Route: 065
     Dates: start: 20231108, end: 20240510
  104. ALTEPLASE [Concomitant]
     Active Substance: ALTEPLASE
     Indication: Product used for unknown indication
     Route: 065
     Dates: start: 20250415, end: 20250415
  105. AMLODIPINE BESYLATE [Concomitant]
     Active Substance: AMLODIPINE BESYLATE
     Indication: Product used for unknown indication
     Dosage: 5 MILLIGRAM, TWO TIMES A DAY
     Route: 065
     Dates: start: 20241018
  106. METAMIZOL [Concomitant]
     Active Substance: METAMIZOLE SODIUM
     Indication: Product used for unknown indication
     Route: 048
  107. ENOXAPARIN SODIUM [Concomitant]
     Active Substance: ENOXAPARIN SODIUM
     Indication: Prophylaxis
     Dosage: 40 MILLIGRAM, ONCE A DAY
     Route: 058
     Dates: start: 20231220, end: 20231222
  108. ENOXAPARIN SODIUM [Concomitant]
     Active Substance: ENOXAPARIN SODIUM
     Dosage: 40 MILLIGRAM, ONCE A DAY
     Route: 058
     Dates: start: 20231221, end: 20231223
  109. ENOXAPARIN SODIUM [Concomitant]
     Active Substance: ENOXAPARIN SODIUM
     Dosage: 40 MILLIGRAM, ONCE A DAY
     Route: 058
     Dates: start: 20240306, end: 20240308
  110. ENOXAPARIN SODIUM [Concomitant]
     Active Substance: ENOXAPARIN SODIUM
     Dosage: 40 MILLIGRAM, ONCE A DAY
     Route: 058
     Dates: start: 20240405, end: 20240407
  111. ENOXAPARIN SODIUM [Concomitant]
     Active Substance: ENOXAPARIN SODIUM
     Dosage: 40 MILLIGRAM, ONCE A DAY
     Route: 058
     Dates: start: 20240415, end: 20240417
  112. ENOXAPARIN SODIUM [Concomitant]
     Active Substance: ENOXAPARIN SODIUM
     Dosage: 40 MILLIGRAM, ONCE A DAY
     Route: 058
     Dates: start: 20231109, end: 20231111
  113. TRAMADOL [Concomitant]
     Active Substance: TRAMADOL
     Indication: Product used for unknown indication
     Route: 048
     Dates: start: 20231110
  114. THIAMINE [Concomitant]
     Active Substance: THIAMINE
     Indication: Prophylaxis
     Dosage: 100 MILLIGRAM, 3 TIMES A DAY
     Route: 042
     Dates: start: 20231110, end: 20231113
  115. MOVICOL [Concomitant]
     Active Substance: POLYETHYLENE GLYCOL 3350\POTASSIUM CHLORIDE\SODIUM BICARBONATE\SODIUM CHLORIDE
     Indication: Prophylaxis
     Route: 065
     Dates: start: 20231110, end: 20231117
  116. AMINO ACIDS\DEXTROSE\ELECTROLYTES NOS\SOYBEAN OIL [Concomitant]
     Active Substance: AMINO ACIDS\DEXTROSE\ELECTROLYTES NOS\SOYBEAN OIL
     Indication: Prophylaxis
     Route: 042
     Dates: start: 20231111, end: 20231117
  117. CERNEVIT [Concomitant]
     Active Substance: VITAMINS
     Indication: Prophylaxis
     Route: 042
     Dates: start: 20231111, end: 20231117
  118. Riopan [Concomitant]
     Indication: Product used for unknown indication
     Route: 048
     Dates: start: 20231112, end: 20231112
  119. PIRITRAMIDE [Concomitant]
     Active Substance: PIRITRAMIDE
     Indication: Product used for unknown indication
     Dosage: 7.5 MILLIGRAM, ONCE A DAY
     Route: 042
  120. METOCLOPRAMIDE HYDROCHLORIDE [Concomitant]
     Active Substance: METOCLOPRAMIDE HYDROCHLORIDE
     Indication: Product used for unknown indication
     Dosage: 10 MILLIGRAM, ONCE A DAY
     Route: 048
     Dates: start: 20231207, end: 20231207
  121. METOCLOPRAMIDE HYDROCHLORIDE [Concomitant]
     Active Substance: METOCLOPRAMIDE HYDROCHLORIDE
     Dosage: 10 MILLIGRAM, ONCE A DAY
     Route: 048
     Dates: start: 20231111, end: 20231111
  122. Vomex [Concomitant]
     Indication: Product used for unknown indication
     Route: 042
     Dates: start: 20231113, end: 20231113
  123. Vomex [Concomitant]
     Dosage: 1 DOSAGE FORM, TWO TIMES A DAY
     Route: 042
     Dates: start: 20231111, end: 20231111
  124. Vomex [Concomitant]
     Dosage: 1 DOSAGE FORM, ONCE A DAY
     Route: 042
     Dates: start: 20231207, end: 20231207
  125. DIMETHINDENE [Concomitant]
     Active Substance: DIMETHINDENE
     Indication: Product used for unknown indication
     Dosage: 4 MILLIGRAM, ONCE A DAY
     Route: 048
     Dates: start: 20231124, end: 20231124
  126. DIMETHINDENE [Concomitant]
     Active Substance: DIMETHINDENE
     Dosage: 4 MILLIGRAM, ONCE A DAY
     Route: 048
     Dates: start: 20231117, end: 20231117
  127. DIMETHINDENE [Concomitant]
     Active Substance: DIMETHINDENE
     Dosage: 4 MILLIGRAM, ONCE A DAY
     Route: 048
     Dates: start: 20230207, end: 20240208
  128. DIMETHINDENE [Concomitant]
     Active Substance: DIMETHINDENE
     Dosage: 4 MILLIGRAM, ONCE A DAY
     Route: 048
     Dates: start: 20231109, end: 20231109
  129. ZOFRAN [Concomitant]
     Active Substance: ONDANSETRON HYDROCHLORIDE
     Indication: Product used for unknown indication
     Route: 048
  130. DIMENHYDRINATE [Concomitant]
     Active Substance: DIMENHYDRINATE
     Indication: Product used for unknown indication
     Dosage: 50 MILLIGRAM, ONCE A DAY
     Route: 048
     Dates: start: 20231121, end: 20231121
  131. ZOLPIDEM [Concomitant]
     Active Substance: ZOLPIDEM TARTRATE
     Indication: Prophylaxis
     Dosage: 10 MILLIGRAM, ONCE A DAY
     Route: 048
     Dates: start: 20231206
  132. ZOLPIDEM [Concomitant]
     Active Substance: ZOLPIDEM TARTRATE
     Dosage: 5 MILLIGRAM, ONCE A DAY
     Route: 048
     Dates: start: 20231205, end: 20231205
  133. Mucofalk [Concomitant]
     Indication: Prophylaxis
     Route: 048
     Dates: start: 20231209
  134. CETIRIZINE HYDROCHLORIDE [Concomitant]
     Active Substance: CETIRIZINE HYDROCHLORIDE
     Indication: Product used for unknown indication
     Dosage: 10 MILLIGRAM, ONCE A DAY
     Route: 048
     Dates: start: 20240104, end: 20240104
  135. ASPIRIN [Concomitant]
     Active Substance: ASPIRIN
     Indication: Product used for unknown indication
     Dosage: 100 MILLIGRAM, ONCE A DAY
     Route: 048
     Dates: start: 20240224
  136. INNOHEP [Concomitant]
     Active Substance: TINZAPARIN SODIUM
     Indication: Product used for unknown indication
     Dosage: 0.8 MILLILITER, ONCE A DAY
     Route: 058
  137. APIXABAN [Concomitant]
     Active Substance: APIXABAN
     Indication: Prophylaxis
     Dosage: 5 MILLIGRAM, TWO TIMES A DAY
     Route: 048
     Dates: start: 20240611

REACTIONS (15)
  - Thrombocytopenia [Recovered/Resolved]
  - Foot fracture [Recovered/Resolved]
  - Erectile dysfunction [Not Recovered/Not Resolved]
  - Thrombosis in device [Recovered/Resolved]
  - Mucosal inflammation [Recovered/Resolved]
  - Liver function test increased [Recovering/Resolving]
  - Catheter site extravasation [Recovered/Resolved]
  - Paraesthesia [Not Recovered/Not Resolved]
  - Asthenia [Unknown]
  - Device dislocation [Recovered/Resolved]
  - Muscular weakness [Recovered/Resolved]
  - Gout [Recovered/Resolved]
  - Fatigue [Recovering/Resolving]
  - Upper respiratory tract infection [Recovered/Resolved]
  - Intentional product use issue [Unknown]

NARRATIVE: CASE EVENT DATE: 20240103
